FAERS Safety Report 21534988 (Version 1)
Quarter: 2022Q4

REPORT INFORMATION
  Report Type: Spontaneous
  Country: CN (occurrence: CN)
  Receive Date: 20221101
  Receipt Date: 20221101
  Transmission Date: 20230113
  Serious: Yes (Life-Threatening, Hospitalization, Other)
  Sender: FDA-Public Use
  Company Number: CN-SA-2022SA440880

PATIENT
  Age: 58 Year
  Sex: Male

DRUGS (2)
  1. OXALIPLATIN [Suspect]
     Active Substance: OXALIPLATIN
     Indication: Chemotherapy
     Dosage: UNK , INJECTION
     Dates: start: 20210521
  2. ETOPOSIDE [Suspect]
     Active Substance: ETOPOSIDE
     Indication: Chemotherapy
     Dosage: UNK, INJECTION
     Dates: start: 20210521

REACTIONS (13)
  - Agranulocytosis [Recovering/Resolving]
  - Hyponatraemia [Recovering/Resolving]
  - Thrombocytopenia [Recovering/Resolving]
  - Hypokalaemia [Recovering/Resolving]
  - Bacteroides infection [Recovering/Resolving]
  - Pyrexia [Recovering/Resolving]
  - Fusobacterium infection [Recovering/Resolving]
  - Cytomegalovirus infection [Recovering/Resolving]
  - Enterobacter infection [Recovering/Resolving]
  - Stenotrophomonas infection [Recovering/Resolving]
  - Diarrhoea [Recovering/Resolving]
  - Herpes virus infection [Recovering/Resolving]
  - Anaemia [Recovering/Resolving]

NARRATIVE: CASE EVENT DATE: 20210601
